FAERS Safety Report 13463893 (Version 1)
Quarter: 2017Q2

REPORT INFORMATION
  Report Type: Spontaneous
  Country: US (occurrence: US)
  Receive Date: 20170420
  Receipt Date: 20170420
  Transmission Date: 20170830
  Serious: Yes (Other)
  Sender: FDA-Public Use
  Company Number: US-ROCHE-657269

PATIENT
  Age: 15 Year
  Sex: Male
  Weight: 88.5 kg

DRUGS (6)
  1. ACCUTANE [Suspect]
     Active Substance: ISOTRETINOIN
     Indication: ACNE CYSTIC
     Route: 065
  2. AMNESTEEM [Suspect]
     Active Substance: ISOTRETINOIN
     Indication: ACNE
     Route: 065
     Dates: start: 20030507, end: 20030707
  3. ACCUTANE [Suspect]
     Active Substance: ISOTRETINOIN
     Dosage: DURING THE WEEKENDS
     Route: 065
     Dates: start: 20020430, end: 200305
  4. ACCUTANE [Suspect]
     Active Substance: ISOTRETINOIN
     Dosage: DURING THE WEEKENDS
     Route: 065
     Dates: start: 20010901, end: 200201
  5. ACCUTANE [Suspect]
     Active Substance: ISOTRETINOIN
     Dosage: DURING THE WEEKENDS
     Route: 065
  6. BENZAMYCIN [Concomitant]
     Active Substance: BENZOYL PEROXIDE\ERYTHROMYCIN
     Indication: ACNE
     Route: 065

REACTIONS (9)
  - Dry skin [Unknown]
  - Oral herpes [Unknown]
  - Colitis [Unknown]
  - Depression [Not Recovered/Not Resolved]
  - Diarrhoea [Unknown]
  - Psoriasis [Unknown]
  - Lip dry [Unknown]
  - Inflammatory bowel disease [Unknown]
  - Crohn^s disease [Unknown]

NARRATIVE: CASE EVENT DATE: 20010409
